FAERS Safety Report 7251345-1 (Version None)
Quarter: 2011Q1

REPORT INFORMATION
  Report Type: 
  Country: None (occurrence: None)
  Receive Date: 20110128
  Receipt Date: 20101214
  Transmission Date: 20110831
  Serious: Yes (Hospitalization)
  Sender: FDA-Public Use
  Company Number: US-ROCHE-743289

PATIENT
  Sex: Male
  Weight: 79.8 kg

DRUGS (16)
  1. CARBOPLATIN [Suspect]
     Indication: NON-SMALL CELL LUNG CANCER STAGE IV
     Route: 042
     Dates: start: 20100622, end: 20100803
  2. ASPIRIN [Concomitant]
  3. COMPAZINE [Concomitant]
  4. FOLIC ACID [Concomitant]
     Dates: start: 20100115
  5. ALLEGRA [Concomitant]
  6. BYSTOLIC [Concomitant]
  7. BEVACIZUMAB [Suspect]
     Indication: NON-SMALL CELL LUNG CANCER STAGE IV
     Route: 042
     Dates: start: 20100622, end: 20100803
  8. TIMOPTIC [Concomitant]
  9. DIFLUPREDNATE [Concomitant]
  10. CIPROFLOXACIN [Concomitant]
  11. NEXIUM [Concomitant]
  12. PEMETREXED [Suspect]
     Indication: NON-SMALL CELL LUNG CANCER STAGE IV
     Route: 042
     Dates: start: 20100622, end: 20100803
  13. DECADRON [Concomitant]
  14. MEGACE [Concomitant]
     Dates: start: 20100810
  15. ZESTRIL [Concomitant]
  16. VITAMIN B-12 [Concomitant]
     Dates: start: 20100115

REACTIONS (1)
  - INAPPROPRIATE ANTIDIURETIC HORMONE SECRETION [None]
